FAERS Safety Report 4344966-7 (Version None)
Quarter: 2004Q2

REPORT INFORMATION
  Report Type: 
  Country: None (occurrence: None)
  Receive Date: 20040421
  Receipt Date: 20040421
  Transmission Date: 20050107
  Serious: Yes (Other)
  Sender: FDA-Public Use
  Company Number: None

PATIENT
  Age: 82 Year
  Sex: Male
  Weight: 81.6475 kg

DRUGS (7)
  1. I CAPS [Suspect]
     Indication: EYE DISORDER
     Dosage: 2 BID PO
     Route: 048
     Dates: start: 20040101
  2. CARDURA [Concomitant]
  3. LIPITOR [Concomitant]
  4. COVERA-HS [Concomitant]
  5. PLAVIX [Concomitant]
  6. XALANTAN DROPS [Concomitant]
  7. ASPIRIN [Concomitant]

REACTIONS (6)
  - DRY SKIN [None]
  - ECZEMA [None]
  - EXCORIATION [None]
  - RASH ERYTHEMATOUS [None]
  - RASH GENERALISED [None]
  - RASH PRURITIC [None]
